FAERS Safety Report 5774858-8 (Version None)
Quarter: 2008Q2

REPORT INFORMATION
  Report Type: 
  Country: None (occurrence: None)
  Receive Date: 20080617
  Receipt Date: 20080606
  Transmission Date: 20081010
  Serious: Yes (Disabling)
  Sender: FDA-Public Use
  Company Number: IT-ELI_LILLY_AND_COMPANY-IT200806001657

PATIENT
  Sex: Female

DRUGS (2)
  1. GEMZAR [Suspect]
     Indication: ADENOCARCINOMA
     Dosage: 1280 MG TOTAL, UNKNOWN
     Route: 042
     Dates: start: 20080130, end: 20080429
  2. CARBOPLATIN [Concomitant]
     Dosage: 350 MG TOTAL, UNKNOWN
     Route: 065

REACTIONS (1)
  - CAPILLARY LEAK SYNDROME [None]
